FAERS Safety Report 24055300 (Version 2)
Quarter: 2024Q3

REPORT INFORMATION
  Report Type: Report from Study
  Country: US (occurrence: US)
  Receive Date: 20240705
  Receipt Date: 20240708
  Transmission Date: 20241017
  Serious: Yes (Hospitalization)
  Sender: ABBVIE
  Company Number: US-ABBVIE-5828304

PATIENT
  Age: 58 Year
  Sex: Male

DRUGS (2)
  1. VENCLEXTA [Interacting]
     Active Substance: VENETOCLAX
     Indication: Acute myeloid leukaemia
     Route: 048
  2. POSACONAZOLE [Interacting]
     Active Substance: POSACONAZOLE
     Indication: Product used for unknown indication
     Route: 065
     Dates: start: 20240622

REACTIONS (3)
  - Hospitalisation [Unknown]
  - Drug interaction [Unknown]
  - Off label use [Unknown]

NARRATIVE: CASE EVENT DATE: 20240622
